FAERS Safety Report 19722282 (Version 1)
Quarter: 2021Q3

REPORT INFORMATION
  Report Type: Spontaneous
  Country: PL (occurrence: PL)
  Receive Date: 20210819
  Receipt Date: 20210819
  Transmission Date: 20211014
  Serious: Yes (Hospitalization)
  Sender: FDA-Public Use
  Company Number: PL-MYLANLABS-2021M1052148

PATIENT
  Age: 68 Year
  Sex: Female

DRUGS (7)
  1. BISOPROLOL [Suspect]
     Active Substance: BISOPROLOL
     Indication: HYPERTENSION
     Dosage: UNK
     Route: 065
  2. METFORMIN [Suspect]
     Active Substance: METFORMIN HYDROCHLORIDE
     Indication: DIABETES MELLITUS
     Dosage: 1000 MG, QD
     Route: 065
  3. AMLODIPINE MYLAN [Suspect]
     Active Substance: AMLODIPINE BESYLATE
     Indication: HYPERTENSION
     Dosage: UNK
     Route: 065
  4. METOPROLOL. [Suspect]
     Active Substance: METOPROLOL
     Indication: PRODUCT USED FOR UNKNOWN INDICATION
     Dosage: 50 MG, QD
     Route: 065
  5. PANTOPRAZOLE [Suspect]
     Active Substance: PANTOPRAZOLE
     Indication: PRODUCT USED FOR UNKNOWN INDICATION
     Dosage: 20 MG, QD
     Route: 065
  6. VANCOMYCIN MYLAN [Suspect]
     Active Substance: VANCOMYCIN
     Indication: PRODUCT USED FOR UNKNOWN INDICATION
     Dosage: UNK
     Route: 065
  7. TORASEMIDE [Suspect]
     Active Substance: TORSEMIDE
     Indication: PRODUCT USED FOR UNKNOWN INDICATION
     Dosage: 20 MG, QD
     Route: 065

REACTIONS (20)
  - Cardiac failure [Recovering/Resolving]
  - Iron deficiency [Unknown]
  - Exercise tolerance decreased [Unknown]
  - Body temperature abnormal [Recovered/Resolved]
  - Dyspnoea at rest [Unknown]
  - Endocarditis [Unknown]
  - Microcytic anaemia [Unknown]
  - Bradycardia [Unknown]
  - Phrenic nerve paralysis [Unknown]
  - C-reactive protein increased [Unknown]
  - Abdominal pain [Unknown]
  - Asthenia [Unknown]
  - Cardiomegaly [Recovering/Resolving]
  - Ejection fraction [Unknown]
  - Gastritis [Unknown]
  - Renal disorder [Recovering/Resolving]
  - Cardiac murmur [Unknown]
  - Generalised oedema [Unknown]
  - Hypertension [Unknown]
  - Oedema peripheral [Recovered/Resolved]
